FAERS Safety Report 4795729-X (Version None)
Quarter: 2005Q4

REPORT INFORMATION
  Report Type: 
  Country: None (occurrence: None)
  Receive Date: 20051012
  Receipt Date: 20050927
  Transmission Date: 20060501
  Serious: Yes (Other)
  Sender: FDA-Public Use
  Company Number: PHEH2005US10800

PATIENT
  Age: 40 Year
  Sex: Female
  Weight: 29 kg

DRUGS (7)
  1. TRILEPTAL [Suspect]
     Indication: BIPOLAR DISORDER
     Dosage: 600 MG, QD
     Route: 048
     Dates: start: 20050924, end: 20050925
  2. LITHIUM [Interacting]
     Dosage: 1500 MG, UNK
     Dates: end: 20050927
  3. LORAZEPAM [Interacting]
     Dosage: 8 MG, UNK
     Dates: end: 20050927
  4. AMBIEN [Interacting]
     Dosage: 10 MG, UNK
     Dates: end: 20050927
  5. LAMOTRIGINE [Interacting]
     Dosage: 250 MG, UNK
     Dates: end: 20050927
  6. PROVIGIL [Interacting]
     Dosage: 400 MG, UNK
     Dates: end: 20050927
  7. ATIVAN [Concomitant]
     Dosage: 8 MG, UNK

REACTIONS (3)
  - DIPLOPIA [None]
  - NAUSEA [None]
  - VISION BLURRED [None]
